FAERS Safety Report 8012519 (Version 4)
Quarter: 2013Q2

REPORT INFORMATION
  Report Type: Spontaneous
  Country: US (occurrence: US)
  Receive Date: 20110628
  Receipt Date: 20130402
  Transmission Date: 20140414
  Serious: Yes (Hospitalization, Other)
  Sender: FDA-Public Use
  Company Number: US-BAYER-2011-005005

PATIENT
  Age: 37 Year
  Sex: Female
  Weight: 62.13 kg

DRUGS (4)
  1. OCELLA [Suspect]
     Indication: CONTRACEPTION
     Dosage: 1 DF, QD
     Route: 048
     Dates: start: 200812, end: 200908
  2. MULTIVITAMINS [Concomitant]
     Dosage: UNK UNK, QD
  3. VITAMIN D [Concomitant]
  4. RANITIDINE HYDROCHLORIDE [Concomitant]
     Dosage: 150 MG, UNK

REACTIONS (5)
  - Gallbladder disorder [None]
  - Cholecystitis chronic [None]
  - Pain [None]
  - Injury [None]
  - Emotional distress [None]
